FAERS Safety Report 8329368-0 (Version None)
Quarter: 2012Q2

REPORT INFORMATION
  Report Type: 
  Country: None (occurrence: None)
  Receive Date: 20120502
  Receipt Date: 20120423
  Transmission Date: 20120825
  Serious: Yes (Hospitalization)
  Sender: FDA-Public Use
  Company Number: US-JNJFOC-20120214494

PATIENT
  Sex: Male

DRUGS (8)
  1. REMICADE [Suspect]
     Route: 042
     Dates: start: 20060401, end: 20060401
  2. REMICADE [Suspect]
     Route: 042
     Dates: start: 20041201, end: 20050101
  3. REMICADE [Suspect]
     Route: 042
     Dates: start: 20111018, end: 20120221
  4. REMICADE [Suspect]
     Route: 042
     Dates: start: 20060401, end: 20060401
  5. REMICADE [Suspect]
     Indication: COLITIS ULCERATIVE
     Route: 042
     Dates: start: 20110101, end: 20110221
  6. REMICADE [Suspect]
     Route: 042
     Dates: start: 20041201, end: 20050101
  7. REMICADE [Suspect]
     Indication: CROHN'S DISEASE
     Route: 042
     Dates: start: 20110101, end: 20110221
  8. REMICADE [Suspect]
     Route: 042
     Dates: start: 20111018, end: 20120221

REACTIONS (7)
  - POUCHITIS [None]
  - DECREASED APPETITE [None]
  - WEIGHT DECREASED [None]
  - DRUG INEFFECTIVE [None]
  - CROHN'S DISEASE [None]
  - COLITIS ULCERATIVE [None]
  - MALNUTRITION [None]
